FAERS Safety Report 22134582 (Version 1)
Quarter: 2023Q1

REPORT INFORMATION
  Report Type: Spontaneous
  Country: FR (occurrence: None)
  Receive Date: 20230324
  Receipt Date: 20230324
  Transmission Date: 20230418
  Serious: Yes (Other)
  Sender: FDA-Public Use
  Company Number: 2023A054231

PATIENT
  Age: 72 Year
  Sex: Female

DRUGS (11)
  1. ESOMEPRAZOLE [Suspect]
     Active Substance: ESOMEPRAZOLE
     Indication: Gastrointestinal haemorrhage
     Route: 042
     Dates: start: 20221223
  2. COMIRNATY [Suspect]
     Active Substance: TOZINAMERAN
     Indication: COVID-19 immunisation
     Dosage: 1 DOSAGE FORM, ONCE1.0DF ONCE/SINGLE ADMINISTRATION
     Route: 030
     Dates: start: 20221209, end: 20221209
  3. LOSARTAN POTASSIUM [Concomitant]
     Active Substance: LOSARTAN POTASSIUM
     Dosage: UNK UNK, 1/DAY
  4. ASTRAZENECA COVID-19 VACCINE [Concomitant]
     Active Substance: AZD-1222
     Indication: COVID-19 immunisation
     Dosage: 1 DOSAGE FORM, ONCE1.0DF ONCE/SINGLE ADMINISTRATION
     Route: 030
     Dates: start: 20210511, end: 20210511
  5. ASTRAZENECA COVID-19 VACCINE [Concomitant]
     Active Substance: AZD-1222
     Indication: COVID-19 immunisation
     Dosage: 1 DOSAGE FORM, ONCE1.0DF ONCE/SINGLE ADMINISTRATION
     Route: 030
     Dates: start: 20210729, end: 20210729
  6. CARTREX [Concomitant]
     Active Substance: ACECLOFENAC
     Dosage: 100 MILLIGRAM
     Route: 048
  7. GINKGO EXTRACT\HEPTAMINOL\TROXERUTIN [Concomitant]
     Active Substance: GINKGO\HEPTAMINOL\TROXERUTIN
     Dosage: UNK UNK, 1/DAY
  8. COMIRNATY [Concomitant]
     Active Substance: TOZINAMERAN
     Indication: COVID-19 immunisation
     Dosage: 30 MICROGRAM, ONCE30.0UG ONCE/SINGLE ADMINISTRATION
     Route: 030
     Dates: start: 20220212, end: 20220212
  9. TRAMADOL HYDROCHLORIDE [Concomitant]
     Active Substance: TRAMADOL HYDROCHLORIDE
     Dosage: 1 DOSAGE FORM, 3/DAY
  10. ASTRAZENECA COVID-19 VACCINE [Concomitant]
     Active Substance: AZD-1222
     Indication: COVID-19 immunisation
     Dosage: D21.0DF ONCE/SINGLE ADMINISTRATION
     Dates: start: 20210729, end: 20210729
  11. PAROXETINE HYDROCHLORIDE [Concomitant]
     Active Substance: PAROXETINE HYDROCHLORIDE
     Dosage: 20 MILLIGRAM, 1/DAY
     Route: 048

REACTIONS (1)
  - Myocarditis [Not Recovered/Not Resolved]

NARRATIVE: CASE EVENT DATE: 20221228
